FAERS Safety Report 5145054-2 (Version None)
Quarter: 2006Q4

REPORT INFORMATION
  Report Type: 
  Country: None (occurrence: None)
  Receive Date: 20061107
  Receipt Date: 20061016
  Transmission Date: 20070319
  Serious: Yes (Other)
  Sender: FDA-Public Use
  Company Number: PHNU2006DE03452

PATIENT
  Sex: Female
  Weight: 58 kg

DRUGS (5)
  1. ZOLEDRONATE [Suspect]
     Indication: METASTASES TO BONE
     Dosage: 4MG
     Route: 042
     Dates: start: 20050411, end: 20060401
  2. ZOMETA [Suspect]
     Indication: METASTASES TO BONE
     Dates: end: 20060601
  3. ASTROMICIN [Concomitant]
  4. HYDROCORTISON [Concomitant]
  5. ACCUPRO [Concomitant]

REACTIONS (2)
  - IMPAIRED HEALING [None]
  - OSTEONECROSIS [None]
